FAERS Safety Report 9935447 (Version 2)
Quarter: 2014Q2

REPORT INFORMATION
  Report Type: Spontaneous
  Country: US (occurrence: US)
  Receive Date: 20140228
  Receipt Date: 20140407
  Transmission Date: 20141212
  Serious: Yes (Other)
  Sender: FDA-Public Use
  Company Number: US-PFIZER INC-2014056296

PATIENT
  Age: 53 Year
  Sex: Female

DRUGS (3)
  1. FLECTOR [Suspect]
     Indication: OSTEOARTHRITIS
     Dosage: 1 DF, Q12
     Route: 062
  2. PROZAC [Concomitant]
     Dosage: 40 MG, 1X/DAY (Q DAY)
  3. LYRICA [Concomitant]
     Dosage: 150 MG, 2X/DAY

REACTIONS (3)
  - Intentional product misuse [Unknown]
  - Peptic ulcer [Recovered/Resolved]
  - Gastrointestinal disorder [Recovered/Resolved]
